FAERS Safety Report 10238636 (Version 1)
Quarter: 2014Q2

REPORT INFORMATION
  Report Type: Spontaneous
  Country: US (occurrence: US)
  Receive Date: 20140616
  Receipt Date: 20140616
  Transmission Date: 20141212
  Serious: Yes (Other)
  Sender: FDA-Public Use
  Company Number: US-BAYER-2014-084542

PATIENT
  Age: 32 Year
  Sex: Male
  Weight: 93 kg

DRUGS (2)
  1. ALEVE GELCAPS [Suspect]
     Indication: ARTHRALGIA
     Dosage: 2 DF, PRN
     Route: 048
     Dates: start: 20140531
  2. ALEVE GELCAPS [Suspect]
     Indication: ARTHRALGIA
     Dosage: 1 DF, UNK
     Route: 048
     Dates: start: 20140603

REACTIONS (4)
  - Foreign body aspiration [Recovered/Resolved]
  - Foreign body [Recovered/Resolved]
  - Throat irritation [Recovered/Resolved]
  - Sensation of foreign body [Recovered/Resolved]
